FAERS Safety Report 13518867 (Version 1)
Quarter: 2017Q2

REPORT INFORMATION
  Report Type: Spontaneous
  Country: US (occurrence: US)
  Receive Date: 20170505
  Receipt Date: 20170505
  Transmission Date: 20170830
  Serious: No
  Sender: FDA-Public Use
  Company Number: PHEH2017US013304

PATIENT
  Sex: Female

DRUGS (1)
  1. COSENTYX [Suspect]
     Active Substance: SECUKINUMAB
     Indication: PRODUCT USED FOR UNKNOWN INDICATION
     Dosage: 150 MG, QMO
     Route: 065

REACTIONS (7)
  - Abdominal discomfort [Unknown]
  - Weight decreased [Unknown]
  - Constipation [Unknown]
  - Abdominal pain upper [Unknown]
  - Diarrhoea [Unknown]
  - Decreased appetite [Unknown]
  - Pain [Unknown]
